FAERS Safety Report 23389772 (Version 1)
Quarter: 2024Q1

REPORT INFORMATION
  Report Type: Report from Study
  Country: CA (occurrence: CA)
  Receive Date: 20240111
  Receipt Date: 20240111
  Transmission Date: 20240409
  Serious: Yes (Other)
  Sender: FDA-Public Use
  Company Number: CA-JNJFOC-20231170596

PATIENT
  Age: 21 Year
  Sex: Male

DRUGS (1)
  1. REMICADE [Suspect]
     Active Substance: INFLIXIMAB
     Indication: Crohn^s disease
     Dosage: THERAPY START DATE:18/MAY/2016?ON 24-NOV-2023, THE PATIENT RECEIVED 114TH INFUSION OF INFLIXIMAB OF
     Route: 041
     Dates: start: 20100923

REACTIONS (3)
  - Crohn^s disease [Not Recovered/Not Resolved]
  - Herpes zoster [Recovered/Resolved]
  - Off label use [Unknown]

NARRATIVE: CASE EVENT DATE: 20100923
